FAERS Safety Report 11794875 (Version 1)
Quarter: 2015Q4

REPORT INFORMATION
  Report Type: Spontaneous
  Country: DE (occurrence: DE)
  Receive Date: 20151202
  Receipt Date: 20151202
  Transmission Date: 20160305
  Serious: Yes (Congenital Anomaly)
  Sender: FDA-Public Use
  Company Number: DE-TEVA-612597GER

PATIENT
  Age: 0 Year
  Sex: Male
  Weight: .57 kg

DRUGS (5)
  1. FOLIO FORTE [Concomitant]
     Active Substance: FOLIC ACID\VITAMINS
     Indication: PROPHYLAXIS OF NEURAL TUBE DEFECT
     Dosage: .8 MILLIGRAM DAILY;
     Route: 064
     Dates: start: 20141029, end: 20150401
  2. NASENSPRAY - RATIOPHARM (KINDER) [Concomitant]
     Indication: RHINITIS
     Route: 064
     Dates: start: 201412, end: 201412
  3. METOPROLOL RETARD [Suspect]
     Active Substance: METOPROLOL TARTRATE
     Indication: HYPERTENSION
     Route: 064
     Dates: start: 20141029, end: 20150401
  4. PRESINOL [Concomitant]
     Active Substance: METHYLDOPA
     Indication: HYPERTENSION
     Dosage: 500 MILLIGRAM DAILY;
     Route: 064
     Dates: start: 20141217, end: 20141222
  5. MIFEGYNE [Concomitant]
     Active Substance: MIFEPRISTONE
     Indication: LABOUR INDUCTION
     Route: 064
     Dates: start: 20150331, end: 20150331

REACTIONS (5)
  - Maternal drugs affecting foetus [None]
  - Spina bifida [Not Recovered/Not Resolved]
  - Meningomyelocele [Not Recovered/Not Resolved]
  - Arnold-Chiari malformation [Not Recovered/Not Resolved]
  - Foetal exposure during pregnancy [Unknown]

NARRATIVE: CASE EVENT DATE: 2015
